FAERS Safety Report 25697422 (Version 1)
Quarter: 2025Q3

REPORT INFORMATION
  Report Type: Spontaneous
  Country: AU (occurrence: AU)
  Receive Date: 20250818
  Receipt Date: 20250818
  Transmission Date: 20251021
  Serious: Yes (Hospitalization)
  Sender: ELI LILLY AND COMPANY
  Company Number: AU-ELI_LILLY_AND_COMPANY-AU202508005623

PATIENT
  Age: 53 Year
  Sex: Female

DRUGS (2)
  1. MOUNJARO [Suspect]
     Active Substance: TIRZEPATIDE
     Indication: Weight control
     Route: 065
     Dates: start: 20250413
  2. MOUNJARO [Suspect]
     Active Substance: TIRZEPATIDE
     Indication: Weight control
     Route: 065
     Dates: start: 20250225

REACTIONS (7)
  - Mobility decreased [Unknown]
  - Hypotonia [Unknown]
  - Skin wrinkling [Unknown]
  - Skin laxity [Unknown]
  - Muscle atrophy [Unknown]
  - Inappropriate schedule of product administration [Unknown]
  - Fatigue [Unknown]
